FAERS Safety Report 11445709 (Version 1)
Quarter: 2015Q3

REPORT INFORMATION
  Report Type: Spontaneous
  Country: US (occurrence: None)
  Receive Date: 20150826
  Receipt Date: 20150826
  Transmission Date: 20151125
  Serious: Yes (Other)
  Sender: FDA-Public Use
  Company Number: PHEH2014US016790

PATIENT
  Age: 63 Year
  Sex: Female
  Weight: 108.8 kg

DRUGS (1)
  1. SANDOSTATIN LAR DEPOT [Suspect]
     Active Substance: OCTREOTIDE ACETATE
     Route: 030
     Dates: start: 20130811, end: 20140723

REACTIONS (3)
  - Gastric ulcer [None]
  - Abdominal discomfort [None]
  - Abdominal distension [None]

NARRATIVE: CASE EVENT DATE: 20140819
